FAERS Safety Report 24840417 (Version 1)
Quarter: 2025Q1

REPORT INFORMATION
  Report Type: Other
  Country: GT (occurrence: GT)
  Receive Date: 20250114
  Receipt Date: 20250114
  Transmission Date: 20250408
  Serious: No
  Sender: TOLMAR
  Company Number: GT-TOLMAR, INC.-24GT055020

PATIENT
  Sex: Male

DRUGS (6)
  1. ELIGARD [Suspect]
     Active Substance: LEUPROLIDE ACETATE
     Indication: Prostate cancer
     Dosage: 45 MILLIGRAM, Q 6 MONTH
     Route: 058
     Dates: start: 20230522
  2. ELIGARD [Suspect]
     Active Substance: LEUPROLIDE ACETATE
     Dosage: 45 MILLIGRAM, Q 6 MONTH
     Route: 058
     Dates: start: 20240711
  3. ELIGARD [Suspect]
     Active Substance: LEUPROLIDE ACETATE
     Indication: Prostate cancer
  4. RADIATION THERAPY [Suspect]
     Active Substance: RADIATION THERAPY
     Indication: Prostate cancer
     Dates: end: 202311
  5. TEOPRIN [Concomitant]
     Indication: Cancer hormonal therapy
     Dosage: 1 DOSAGE FORM, QD
  6. METFORMIN [Concomitant]
     Active Substance: METFORMIN HYDROCHLORIDE
     Indication: Diabetes mellitus
     Dosage: UNK, QD

REACTIONS (2)
  - Burning sensation [Unknown]
  - Hypoaesthesia [Unknown]
